FAERS Safety Report 4647439-7 (Version None)
Quarter: 2005Q2

REPORT INFORMATION
  Report Type: 
  Country: None (occurrence: None)
  Receive Date: 20050428
  Receipt Date: 20050418
  Transmission Date: 20051028
  Serious: Yes (Other)
  Sender: FDA-Public Use
  Company Number: US-JNJFOC-20050404910

PATIENT
  Sex: Female
  Weight: 44.45 kg

DRUGS (2)
  1. DURAGESIC [Suspect]
     Route: 062
  2. AMBIEN [Concomitant]
     Indication: INSOMNIA
     Dosage: 5 MG AS NEEDED
     Route: 049

REACTIONS (4)
  - DRUG WITHDRAWAL CONVULSIONS [None]
  - NAUSEA [None]
  - NERVOUSNESS [None]
  - TREMOR [None]
